FAERS Safety Report 16589790 (Version 1)
Quarter: 2019Q3

REPORT INFORMATION
  Report Type: Other
  Country: US (occurrence: US)
  Receive Date: 20190718
  Receipt Date: 20190718
  Transmission Date: 20191004
  Serious: No
  Sender: FDA-Public Use
  Company Number: US-SWEDISH ORPHAN BIOVITRUM-2019US0930

PATIENT
  Sex: Female

DRUGS (15)
  1. WELLBUTRIN XL [Concomitant]
     Active Substance: BUPROPION HYDROCHLORIDE
  2. VITAMIN D [Concomitant]
     Active Substance: VITAMIN D NOS
  3. SYNTHROID [Concomitant]
     Active Substance: LEVOTHYROXINE SODIUM
  4. PREDNISONE. [Concomitant]
     Active Substance: PREDNISONE
  5. METOPROLOL. [Concomitant]
     Active Substance: METOPROLOL
  6. COLCHICINE. [Concomitant]
     Active Substance: COLCHICINE
  7. IBUPROFEN. [Concomitant]
     Active Substance: IBUPROFEN
  8. KINERET [Suspect]
     Active Substance: ANAKINRA
     Route: 058
     Dates: start: 20190408
  9. CALCITRIOL. [Concomitant]
     Active Substance: CALCITRIOL
  10. CHLORTHALIDONE. [Concomitant]
     Active Substance: CHLORTHALIDONE
  11. POTASSIUM [Concomitant]
     Active Substance: POTASSIUM
  12. BACTRIM [Concomitant]
     Active Substance: SULFAMETHOXAZOLE\TRIMETHOPRIM
  13. ALIGN [Concomitant]
     Active Substance: BIFIDOBACTERIUM LONGUM SUBSP. INFANTIS
  14. MAGNESIUM [Concomitant]
     Active Substance: MAGNESIUM
  15. PANTOPRAZOLE [Concomitant]
     Active Substance: PANTOPRAZOLE

REACTIONS (3)
  - Injection site rash [Unknown]
  - Injection site bruising [Unknown]
  - Injection site pruritus [Unknown]
